FAERS Safety Report 24684885 (Version 1)
Quarter: 2024Q4

REPORT INFORMATION
  Report Type: Report from Study
  Country: US (occurrence: US)
  Receive Date: 20241202
  Receipt Date: 20241202
  Transmission Date: 20250115
  Serious: Yes (Hospitalization, Other)
  Sender: ABBVIE
  Company Number: US-ABBVIE-5995755

PATIENT
  Age: 76 Year
  Sex: Female
  Weight: 99.79 kg

DRUGS (2)
  1. HUMIRA [Suspect]
     Active Substance: ADALIMUMAB
     Indication: Rheumatoid arthritis
     Route: 058
     Dates: start: 202306, end: 202405
  2. HUMIRA [Suspect]
     Active Substance: ADALIMUMAB
     Dosage: RESUMED AFTER SURGERY
     Route: 058
     Dates: start: 2024

REACTIONS (4)
  - Intervertebral disc degeneration [Recovered/Resolved]
  - Back pain [Recovered/Resolved]
  - Cerebrovascular accident [Recovering/Resolving]
  - Fall [Recovered/Resolved]

NARRATIVE: CASE EVENT DATE: 20240101
